FAERS Safety Report 17411774 (Version 3)
Quarter: 2021Q3

REPORT INFORMATION
  Report Type: Spontaneous
  Country: NO (occurrence: NO)
  Receive Date: 20200213
  Receipt Date: 20210703
  Transmission Date: 20211014
  Serious: Yes (Hospitalization, Other)
  Sender: FDA-Public Use
  Company Number: NO-LUPIN PHARMACEUTICALS INC.-2020-00634

PATIENT
  Age: 5 Decade
  Sex: Female

DRUGS (9)
  1. SOBRIL [Suspect]
     Active Substance: OXAZEPAM
     Dosage: 450 MILLIGRAM, QD
     Route: 065
  2. OXYCODONE HYDROCHLORIDE TABLETS [Suspect]
     Active Substance: OXYCODONE HYDROCHLORIDE
     Dosage: 820 MILLIGRAM, QD
     Route: 065
  3. OXYCODONE HYDROCHLORIDE CAPSULE [Suspect]
     Active Substance: OXYCODONE HYDROCHLORIDE
     Indication: PAIN
     Dosage: 1480 MILLIGRAM, QD
     Route: 065
  4. OXYCODONE HYDROCHLORIDE TABLETS [Suspect]
     Active Substance: OXYCODONE HYDROCHLORIDE
     Dosage: UNK (SHE REDUCED HER OXYCODONE INTAKE BY 10% EVERY OTHER WEEK )
     Route: 065
  5. OXYCODONE HYDROCHLORIDE CAPSULE [Suspect]
     Active Substance: OXYCODONE HYDROCHLORIDE
     Dosage: 2000 MILLIGRAM, QD
     Route: 065
  6. OXYCODONE HYDROCHLORIDE CAPSULE [Suspect]
     Active Substance: OXYCODONE HYDROCHLORIDE
     Dosage: UNK (SHE REDUCED HER OXYCODONE INTAKE BY 10% EVERY OTHER WEEK)
     Route: 065
  7. SOBRIL [Suspect]
     Active Substance: OXAZEPAM
     Indication: PRODUCT USED FOR UNKNOWN INDICATION
     Dosage: 500 MILLIGRAM, QD
     Route: 065
  8. OXYCODONE HYDROCHLORIDE TABLETS [Suspect]
     Active Substance: OXYCODONE HYDROCHLORIDE
     Dosage: 4920 MILLIGRAM, QD
     Route: 065
  9. OXYCODONE HYDROCHLORIDE TABLETS [Suspect]
     Active Substance: OXYCODONE HYDROCHLORIDE
     Indication: PAIN
     Dosage: 9000 MILLIGRAM, QD
     Route: 065

REACTIONS (17)
  - Gamma-glutamyltransferase increased [Unknown]
  - Constipation [Recovered/Resolved]
  - Restlessness [Recovered/Resolved]
  - Malaise [Recovered/Resolved]
  - Chills [Recovered/Resolved]
  - Prescribed overdose [Unknown]
  - Oedema peripheral [Recovered/Resolved]
  - Withdrawal syndrome [Recovered/Resolved]
  - Anxiety [Recovering/Resolving]
  - Incorrect dose administered [Recovering/Resolving]
  - Drug level increased [Recovered/Resolved]
  - Fatigue [Recovered/Resolved]
  - Somnolence [Recovered/Resolved]
  - Contraindicated product prescribed [Unknown]
  - Impaired work ability [Recovering/Resolving]
  - Hyperhidrosis [Recovered/Resolved]
  - Mental disorder [Recovered/Resolved]
